FAERS Safety Report 20957721 (Version 2)
Quarter: 2022Q2

REPORT INFORMATION
  Report Type: Report from Study
  Country: BR (occurrence: BR)
  Receive Date: 20220614
  Receipt Date: 20220625
  Transmission Date: 20220720
  Serious: Yes (Other)
  Sender: FDA-Public Use
  Company Number: BR-JNJFOC-20220616311

PATIENT
  Age: 68 Year
  Sex: Female

DRUGS (3)
  1. IBRUTINIB [Suspect]
     Active Substance: IBRUTINIB
     Indication: Chronic lymphocytic leukaemia
     Route: 048
     Dates: start: 20160715
  2. IBRUTINIB [Suspect]
     Active Substance: IBRUTINIB
     Indication: Anaemia
  3. IBRUTINIB [Suspect]
     Active Substance: IBRUTINIB
     Indication: Thrombocytopenia

REACTIONS (1)
  - Pyoderma gangrenosum [Unknown]

NARRATIVE: CASE EVENT DATE: 20170510
